FAERS Safety Report 18791106 (Version 1)
Quarter: 2021Q1

REPORT INFORMATION
  Report Type: Spontaneous
  Country: US (occurrence: US)
  Receive Date: 20210126
  Receipt Date: 20210126
  Transmission Date: 20210419
  Serious: No
  Sender: FDA-Public Use
  Company Number: US-ROCHE-2707815

PATIENT
  Sex: Male

DRUGS (15)
  1. NIFEDIPINE. [Concomitant]
     Active Substance: NIFEDIPINE
     Dosage: EXTENDED RELEASE TABLET?TAKE 1 TABLET BY MOUTH ONCE DAILY
     Route: 048
  2. ASPIRIN. [Concomitant]
     Active Substance: ASPIRIN
     Route: 048
  3. COMBIVENT RESPIMAT [Concomitant]
     Active Substance: ALBUTEROL SULFATE\IPRATROPIUM BROMIDE
     Dosage: 20 MCG?100 MCG/ACTUATLON SOLUTION?INHALE 1 PUFF BY MOUTH FOUR TIMES DAILY
     Route: 055
  4. AZATHIOPRINE. [Concomitant]
     Active Substance: AZATHIOPRINE
     Dosage: TAKE 1 TAB EVERY DAY BY ORAL ROUTE
     Route: 048
  5. IPRATROPIUM/ALBUTEROL [Concomitant]
     Active Substance: ALBUTEROL\IPRATROPIUM
     Dosage: INHALE CONTENTS OF 1 VIAL THREE TIMES A DAY IN NBULIZER?0.5 MG?3 MG (2.5 MG BASE)/3 ML NEBULIZATION
     Route: 055
  6. ROPINIROLE. [Concomitant]
     Active Substance: ROPINIROLE
     Dosage: TAKE 1 TABLET BY MOUTH AT BEDTIME IF NEEDED
     Route: 048
  7. ATORVASTATIN [Concomitant]
     Active Substance: ATORVASTATIN
     Dosage: TAKE 1 TABLET BY MOUTH AT BEDTIME
     Route: 048
  8. PIOGLITAZONE. [Concomitant]
     Active Substance: PIOGLITAZONE
     Dosage: TAKE 1 TABLET BY MOUTH DAILY
     Route: 048
  9. TAMSULOSIN [Concomitant]
     Active Substance: TAMSULOSIN
     Dosage: TAKE 1 CAPSULE BY MOUTH ONCE DAILY
     Route: 048
  10. RITUXAN [Suspect]
     Active Substance: RITUXIMAB
     Indication: ARTERITIS
     Dosage: 500MG/50ML
     Route: 041
     Dates: start: 20201102
  11. VITAMIN D3 [Concomitant]
     Active Substance: CHOLECALCIFEROL
     Dosage: TAKE 1 CAPSULE(S) EVERY DAY BY ORAL ROUTE FOR 30 DAYS
     Route: 048
  12. HYDROXYCHLOROQUINE [Concomitant]
     Active Substance: HYDROXYCHLOROQUINE
     Dosage: TAKE 1 TABLET BY MOUTH TWICE DAILY( EVERY TWELVE HOURS)
     Route: 048
  13. NEXIUM [Concomitant]
     Active Substance: ESOMEPRAZOLE MAGNESIUM
     Dosage: DELAYED RELEASE CAPSULE?2 TABS A DAY
  14. TRAMADOL. [Concomitant]
     Active Substance: TRAMADOL
     Indication: PAIN
     Dosage: TAKE 2 TABLETS BY MOUTH FOUR TIMES DAILY WITH FOOD AS NEEDED
     Route: 048
  15. FLUOCINONIDE. [Concomitant]
     Active Substance: FLUOCINONIDE
     Dosage: APPLY TOPICALLY TO AFFECTED AREA TWICE DAILY
     Route: 061

REACTIONS (3)
  - Intentional product use issue [Unknown]
  - Dyspnoea [Unknown]
  - Off label use [Unknown]
